FAERS Safety Report 20157272 (Version 1)
Quarter: 2021Q4

REPORT INFORMATION
  Report Type: Report from Study
  Country: JP (occurrence: JP)
  Receive Date: 20211207
  Receipt Date: 20211207
  Transmission Date: 20220303
  Serious: Yes (Hospitalization)
  Sender: FDA-Public Use
  Company Number: JP-Eisai-202109215_BOLD-LF_C_1

PATIENT
  Age: 49 Year
  Sex: Male
  Weight: 67 kg

DRUGS (12)
  1. ERIBULIN [Suspect]
     Active Substance: ERIBULIN
     Indication: Oesophageal carcinoma
     Route: 041
     Dates: start: 20211117, end: 20211117
  2. NIVOLUMAB [Suspect]
     Active Substance: NIVOLUMAB
     Indication: Oesophageal carcinoma
     Route: 041
     Dates: start: 20211117, end: 20211117
  3. LOXOPROFEN [Suspect]
     Active Substance: LOXOPROFEN
     Indication: Febrile neutropenia
     Dosage: FREQUENCY UNKNOWN
     Route: 048
     Dates: start: 20211126, end: 20211126
  4. PIPERACILLIN SODIUM\TAZOBACTAM SODIUM [Suspect]
     Active Substance: PIPERACILLIN SODIUM\TAZOBACTAM SODIUM
     Indication: Febrile neutropenia
     Route: 042
     Dates: start: 20211126, end: 20211126
  5. PIPERACILLIN SODIUM\TAZOBACTAM SODIUM [Suspect]
     Active Substance: PIPERACILLIN SODIUM\TAZOBACTAM SODIUM
     Route: 042
     Dates: start: 20211127, end: 20211127
  6. VONOPRAZAN FUMARATE [Concomitant]
     Active Substance: VONOPRAZAN FUMARATE
     Indication: Gastritis prophylaxis
     Dates: start: 20210819
  7. HACHIAZULE [Concomitant]
     Indication: Prophylaxis
     Dates: start: 20210819
  8. DIETARY SUPPLEMENT\PROBIOTICS [Concomitant]
     Active Substance: DIETARY SUPPLEMENT\PROBIOTICS
     Indication: Diarrhoea
     Dates: start: 20211127, end: 20211202
  9. FILGRASTIM BS[BIOSIMILAR 1] [Concomitant]
     Indication: Febrile neutropenia
     Dates: start: 20211126, end: 20211128
  10. ISOTONIC SODIUM CHLORIDE SOLUTION [Concomitant]
     Active Substance: SODIUM CHLORIDE
     Indication: Decreased appetite
     Dates: start: 20211126, end: 20211129
  11. DEXTROSE\SODIUM CHLORIDE\SODIUM LACTATE [Concomitant]
     Active Substance: DEXTROSE\SODIUM CHLORIDE\SODIUM LACTATE
     Indication: Decreased appetite
     Dates: start: 20211126, end: 20211126
  12. CYANOCOBALAMIN\PYRIDOXINE HYDROCHLORIDE\THIAMINE [Concomitant]
     Active Substance: CYANOCOBALAMIN\PYRIDOXINE HYDROCHLORIDE\THIAMINE
     Indication: Decreased appetite
     Dates: start: 20211127, end: 20211129

REACTIONS (3)
  - Febrile neutropenia [Recovered/Resolved]
  - Blood creatinine increased [Recovered/Resolved]
  - Decreased appetite [Not Recovered/Not Resolved]

NARRATIVE: CASE EVENT DATE: 20211119
